FAERS Safety Report 13771521 (Version 1)
Quarter: 2017Q3

REPORT INFORMATION
  Report Type: Spontaneous
  Country: US (occurrence: US)
  Receive Date: 20170720
  Receipt Date: 20170720
  Transmission Date: 20171127
  Serious: Yes (Other)
  Sender: FDA-Public Use
  Company Number: US-ACCORD-053627

PATIENT
  Age: 69 Year
  Sex: Female

DRUGS (1)
  1. OLMESARTAN/OLMESARTAN MEDOXOMIL [Suspect]
     Active Substance: OLMESARTAN
     Indication: PRODUCT USED FOR UNKNOWN INDICATION
     Dosage: 40 MG DAILY FOR 2.5 YEARS

REACTIONS (5)
  - Gastrointestinal inflammation [Recovered/Resolved]
  - Intestinal villi atrophy [Recovered/Resolved]
  - Gastritis [Recovered/Resolved]
  - Steatorrhoea [Recovered/Resolved]
  - Gastritis erosive [Recovered/Resolved]
